FAERS Safety Report 13822749 (Version 2)
Quarter: 2017Q3

REPORT INFORMATION
  Report Type: Spontaneous
  Country: FR (occurrence: FR)
  Receive Date: 20170801
  Receipt Date: 20170803
  Transmission Date: 20171127
  Serious: Yes (Other)
  Sender: FDA-Public Use
  Company Number: FR-ALLERGAN-1731247US

PATIENT
  Age: 52 Year
  Sex: Female

DRUGS (9)
  1. PREDNISOLONE UNK [Suspect]
     Active Substance: PREDNISOLONE
     Dosage: 5 MG, QD
     Route: 065
  2. AZATHIOPRINE. [Suspect]
     Active Substance: AZATHIOPRINE
     Indication: POLYARTERITIS NODOSA
     Route: 065
  3. CYCLOPHOSPHAMIDE. [Suspect]
     Active Substance: CYCLOPHOSPHAMIDE
     Dosage: 3 MG/KG, QD
     Route: 048
  4. COLCHICINE. [Suspect]
     Active Substance: COLCHICINE
     Indication: POLYARTERITIS NODOSA
     Dosage: UNK
     Route: 065
     Dates: start: 2010
  5. METHOTREXATE. [Suspect]
     Active Substance: METHOTREXATE
     Indication: POLYARTERITIS NODOSA
     Route: 065
  6. PREDNISOLONE UNK [Suspect]
     Active Substance: PREDNISOLONE
     Indication: POLYARTERITIS NODOSA
     Dosage: 0.7 MG/KG, QD
     Route: 065
  7. CYCLOPHOSPHAMIDE. [Suspect]
     Active Substance: CYCLOPHOSPHAMIDE
     Indication: POLYARTERITIS NODOSA
     Dosage: UNK
     Route: 050
  8. DAPSONE UNK [Suspect]
     Active Substance: DAPSONE
     Indication: POLYARTERITIS NODOSA
     Dosage: UNK
     Route: 065
     Dates: start: 2010
  9. PREDNISOLONE UNK [Suspect]
     Active Substance: PREDNISOLONE
     Dosage: 60 MG, QD
     Route: 065

REACTIONS (2)
  - Haematotoxicity [Recovering/Resolving]
  - Drug ineffective [Unknown]
